FAERS Safety Report 7553432-7 (Version None)
Quarter: 2011Q2

REPORT INFORMATION
  Report Type: 
  Country: None (occurrence: None)
  Receive Date: 20110614
  Receipt Date: 20110614
  Transmission Date: 20111010
  Serious: Yes (Hospitalization)
  Sender: FDA-Public Use
  Company Number: None

PATIENT
  Sex: Male
  Weight: 52.1637 kg

DRUGS (1)
  1. DESMOPRESSIN ACETATE [Suspect]
     Indication: ENURESIS
     Dates: start: 20100912, end: 20110608

REACTIONS (2)
  - DYSURIA [None]
  - HEADACHE [None]
